FAERS Safety Report 24269511 (Version 3)
Quarter: 2024Q4

REPORT INFORMATION
  Report Type: Spontaneous
  Country: US (occurrence: US)
  Receive Date: 20240830
  Receipt Date: 20241205
  Transmission Date: 20250115
  Serious: Yes (Hospitalization)
  Sender: SK LIFE SCIENCE
  Company Number: US-SK LIFE SCIENCE, INC.-SKPVG-2024-001930

PATIENT

DRUGS (2)
  1. XCOPRI [Suspect]
     Active Substance: CENOBAMATE
     Indication: Epilepsy
     Dosage: UNK
     Route: 065
     Dates: start: 20240722
  2. XCOPRI [Suspect]
     Active Substance: CENOBAMATE
     Dosage: 100 MILLIGRAM, DAILY
     Route: 065
     Dates: end: 20241112

REACTIONS (2)
  - Seizure [Recovered/Resolved]
  - Product dose omission issue [Unknown]

NARRATIVE: CASE EVENT DATE: 20240816
